FAERS Safety Report 6448011-9 (Version None)
Quarter: 2009Q4

REPORT INFORMATION
  Report Type: 
  Country: None (occurrence: None)
  Receive Date: 20091120
  Receipt Date: 20091109
  Transmission Date: 20100525
  Serious: Yes (Death, Hospitalization)
  Sender: FDA-Public Use
  Company Number: FR-ROCHE-667608

PATIENT
  Sex: Male

DRUGS (15)
  1. CAPECITABINE [Suspect]
     Indication: GASTRIC CANCER
     Route: 065
  2. EPIRUBICIN HCL [Suspect]
     Indication: GASTRIC CANCER
     Dosage: FORM: INJECTABLE SOLUTION
     Route: 065
  3. CISPLATIN [Suspect]
     Indication: GASTRIC CANCER
     Route: 065
  4. XANAX [Concomitant]
     Indication: ANXIETY
     Route: 048
  5. PARACETAMOL [Concomitant]
     Indication: PAIN
     Route: 048
     Dates: start: 20080327
  6. ZOPHREN [Concomitant]
     Indication: NAUSEA
     Route: 048
     Dates: start: 20080327
  7. KARDEGIC [Concomitant]
     Dosage: RECEIVED AS HEMOSTATIC THERAPY
     Route: 048
  8. NEXIUM [Concomitant]
     Dosage: INDICATION: ULCERATIVE ASCITES
     Route: 048
  9. CRESTOR [Concomitant]
     Indication: HYPERLIPIDAEMIA
     Route: 048
  10. MONO-TILDIEM LP [Concomitant]
     Route: 048
  11. ATHYMIL [Concomitant]
     Indication: DEPRESSION
     Route: 048
  12. HAVLANE [Concomitant]
     Indication: INSOMNIA
     Route: 048
  13. XATRAL [Concomitant]
     Route: 048
  14. FORLAX [Concomitant]
     Indication: CONSTIPATION
     Dosage: FORM: POWDER SACHET
     Route: 048
     Dates: start: 20080327
  15. FORTIMEL [Concomitant]
     Route: 048
     Dates: start: 20080327

REACTIONS (1)
  - GENERAL PHYSICAL HEALTH DETERIORATION [None]
